FAERS Safety Report 5473688-4 (Version None)
Quarter: 2007Q4

REPORT INFORMATION
  Report Type: 
  Country: None (occurrence: None)
  Receive Date: 20071001
  Receipt Date: 20070927
  Transmission Date: 20080405
  Serious: Yes (Other)
  Sender: FDA-Public Use
  Company Number: US-BOEHRINGER INGELHEIM PHARMACEUTICALS, INC.-2007-BP-18863BP

PATIENT
  Sex: Female

DRUGS (6)
  1. FLOMAX [Suspect]
     Indication: CYSTOPEXY
     Route: 048
     Dates: start: 20070627, end: 20070701
  2. FLOMAX [Suspect]
     Indication: CYSTITIS
  3. COZAAR [Concomitant]
     Indication: HYPERTENSION
  4. CRESTOR [Concomitant]
     Indication: BLOOD CHOLESTEROL INCREASED
  5. ENABLEX [Concomitant]
  6. VERAPAMIL [Concomitant]

REACTIONS (2)
  - DIZZINESS [None]
  - LOSS OF CONSCIOUSNESS [None]
